FAERS Safety Report 9601397 (Version 2)
Quarter: 2013Q4

REPORT INFORMATION
  Report Type: Spontaneous
  Country: US (occurrence: US)
  Receive Date: 20131007
  Receipt Date: 20131118
  Transmission Date: 20140711
  Serious: Yes (Other)
  Sender: FDA-Public Use
  Company Number: US-BIOGENIDEC-2013BI091977

PATIENT
  Age: 51 Year
  Sex: Female

DRUGS (8)
  1. AVONEX [Suspect]
     Indication: MULTIPLE SCLEROSIS
     Route: 030
     Dates: start: 1998, end: 201009
  2. AVONEX [Suspect]
     Indication: MULTIPLE SCLEROSIS
     Route: 030
     Dates: start: 20130605
  3. AVONEX [Suspect]
     Indication: MULTIPLE SCLEROSIS
     Route: 030
     Dates: start: 20130725, end: 201308
  4. AVONEX [Suspect]
     Indication: MULTIPLE SCLEROSIS
     Route: 030
     Dates: start: 201308
  5. BENADRYL [Concomitant]
     Indication: MULTIPLE ALLERGIES
  6. XYZAL [Concomitant]
     Indication: MULTIPLE ALLERGIES
  7. KEPPRA [Concomitant]
     Indication: CONVULSION
  8. CLONAZEPAM [Concomitant]
     Indication: CONVULSION

REACTIONS (5)
  - Intervertebral disc protrusion [Recovered/Resolved with Sequelae]
  - Stress [Unknown]
  - Crying [Recovered/Resolved]
  - Influenza like illness [Recovered/Resolved]
  - Chest pain [Recovered/Resolved]
